FAERS Safety Report 20289834 (Version 1)
Quarter: 2022Q1

REPORT INFORMATION
  Report Type: Spontaneous
  Country: US (occurrence: None)
  Receive Date: 20220103
  Receipt Date: 20220103
  Transmission Date: 20220423
  Serious: Yes (unspecified)
  Sender: FDA-Public Use
  Company Number: None

PATIENT
  Age: 33 Year
  Sex: Female

DRUGS (1)
  1. AJOVY [Suspect]
     Active Substance: FREMANEZUMAB-VFRM
     Indication: Migraine
     Dosage: 225MG MONTHLY SUBQ?
     Route: 058
     Dates: start: 20211124

REACTIONS (5)
  - Wrong technique in device usage process [None]
  - Device leakage [None]
  - Accidental exposure to product [None]
  - Exposure via skin contact [None]
  - Product dose omission issue [None]

NARRATIVE: CASE EVENT DATE: 20211224
